FAERS Safety Report 15414906 (Version 1)
Quarter: 2018Q3

REPORT INFORMATION
  Report Type: Spontaneous
  Country: US (occurrence: US)
  Receive Date: 20180921
  Receipt Date: 20180921
  Transmission Date: 20181010
  Serious: No
  Sender: FDA-Public Use
  Company Number: US-NOVOPROD-593221

PATIENT
  Age: 62 Year
  Sex: Female

DRUGS (4)
  1. VICTOZA [Suspect]
     Active Substance: LIRAGLUTIDE
     Dosage: 3 ^CLICKS^ Q WEEK
     Route: 058
     Dates: start: 20171101
  2. VICTOZA [Suspect]
     Active Substance: LIRAGLUTIDE
     Indication: TYPE 2 DIABETES MELLITUS
     Dosage: 0.6 MG, QD
     Route: 058
     Dates: start: 20171011, end: 20171026
  3. VICTOZA [Suspect]
     Active Substance: LIRAGLUTIDE
     Dosage: 6 ^CLICKS^ Q WEEK
     Route: 058
  4. VICTOZA [Suspect]
     Active Substance: LIRAGLUTIDE
     Dosage: 0.6 MG, QW
     Route: 058

REACTIONS (7)
  - Dysphagia [Unknown]
  - Swollen tongue [Unknown]
  - Swelling face [Recovered/Resolved]
  - Oral pain [Recovered/Resolved]
  - Off label use [Recovered/Resolved]
  - Oral discomfort [Recovered/Resolved]
  - Rash [Recovered/Resolved]

NARRATIVE: CASE EVENT DATE: 201710
